FAERS Safety Report 14754834 (Version 5)
Quarter: 2018Q3

REPORT INFORMATION
  Report Type: Spontaneous
  Country: DE (occurrence: DE)
  Receive Date: 20180413
  Receipt Date: 20180803
  Transmission Date: 20181010
  Serious: Yes (Life-Threatening, Hospitalization, Other)
  Sender: FDA-Public Use
  Company Number: DE-CONCORDIA PHARMACEUTICALS INC.-E2B_00011024

PATIENT
  Sex: Male

DRUGS (20)
  1. LEUCOVORIN. [Suspect]
     Active Substance: LEUCOVORIN
     Indication: B-CELL LYMPHOMA
     Dosage: 30 MG/250 ML, 4 TIMES IN DAY. ON 10/MAR/2016, RECEIVED THE MOST RECENT CYCLE OF CHOP PRIOR TO SAE.
     Route: 042
     Dates: start: 20160114
  2. RITUXIMAB. [Suspect]
     Active Substance: RITUXIMAB
     Indication: B-CELL LYMPHOMA
     Dosage: ON 14 DAY, MOST RECENT CYCLE NO 3, THE DATE OF MOST RECENT DOSE OF RITUXIMAB 09/MAR/2016
     Route: 042
     Dates: start: 20160125
  3. ACICLOVIR [Concomitant]
     Active Substance: ACYCLOVIR
     Indication: INFECTION PROPHYLAXIS
     Dosage: 400 MG, QD
     Route: 048
     Dates: start: 20160105
  4. CIPROFLOXACIN. [Concomitant]
     Active Substance: CIPROFLOXACIN
     Route: 065
     Dates: start: 20160105
  5. PANTOPRAZOLE [Concomitant]
     Active Substance: PANTOPRAZOLE
     Route: 065
     Dates: start: 20160105
  6. PREDNISOLONE. [Suspect]
     Active Substance: PREDNISOLONE
     Indication: B-CELL LYMPHOMA
     Dosage: UNK (ON 10/MAR/2016, RECEIVED THE MOST RECENT CYCLE OF CHOP PRIOR TO SAE (5 IN 14 D))
     Route: 048
     Dates: start: 20160203
  7. ROPINIROLE. [Concomitant]
     Active Substance: ROPINIROLE
     Route: 065
     Dates: start: 20160105
  8. SULFAMETHOXAZOLE W/TRIMETHOPRIM [Concomitant]
     Active Substance: SULFAMETHOXAZOLE\TRIMETHOPRIM
     Route: 065
     Dates: start: 20160105
  9. SERTRALINE [Concomitant]
     Active Substance: SERTRALINE HYDROCHLORIDE
     Route: 065
     Dates: start: 20160105
  10. LEVETIRACETAM. [Concomitant]
     Active Substance: LEVETIRACETAM
     Route: 065
     Dates: start: 20160105
  11. CYCLOPHOSPHAMIDE. [Suspect]
     Active Substance: CYCLOPHOSPHAMIDE
     Indication: B-CELL LYMPHOMA
     Dosage: UNK, Q2WK (ON 10/MAR/2016, RECEIVED THE MOST RECENT CYCLE OF CHOP PRIOR TO SAE (1 IN 14 D))
     Route: 042
     Dates: start: 20160203
  12. PEGFILGRASTIM [Suspect]
     Active Substance: PEGFILGRASTIM
     Indication: B-CELL LYMPHOMA
     Dosage: DAILY DOSE: 6 MG MILLIGRAM(S) EVERY 2 WEEK/ 6 MG (1 IN 14 D)
     Route: 058
     Dates: start: 20160203
  13. METOPROLOL. [Concomitant]
     Active Substance: METOPROLOL
     Route: 065
     Dates: start: 20160105
  14. METHOTREXATE DISODIUM [Suspect]
     Active Substance: METHOTREXATE SODIUM
     Indication: B-CELL LYMPHOMA
     Dosage: DAILY DOSE: 1.5 G GRAM(S) EVERY DAY, 1.5 G, QD (50% DOSE REDUCTION DUE TO GFR INITIAL 58 ML/MIN)
     Route: 042
     Dates: start: 20160112, end: 20160112
  15. TAMSULOSIN [Concomitant]
     Active Substance: TAMSULOSIN
     Route: 065
     Dates: start: 20160105
  16. LEVODOPA [Concomitant]
     Active Substance: LEVODOPA
     Route: 065
     Dates: start: 20160105
  17. VINCRISTINE [Suspect]
     Active Substance: VINCRISTINE
     Indication: B-CELL LYMPHOMA
     Dosage: DAILY DOSE: 3.91 MG MILLIGRAM(S) EVERY 2 WEEK
     Route: 042
     Dates: start: 20160203
  18. DOXORUBICINE [Suspect]
     Active Substance: DOXORUBICIN
     Indication: B-CELL LYMPHOMA
     Dosage: UNK, Q2WK (ON 10/MAR/2016, RECEIVED THE MOST RECENT CYCLE OF CHOP PRIOR TO SAE (1 IN 14 D))
     Route: 042
     Dates: start: 20160203
  19. COLECALCIFEROL [Concomitant]
     Active Substance: CHOLECALCIFEROL
     Route: 065
     Dates: start: 20160105
  20. AMLODIPINE [Concomitant]
     Active Substance: AMLODIPINE BESYLATE
     Route: 065
     Dates: start: 20160105

REACTIONS (4)
  - Urinary tract obstruction [Recovered/Resolved]
  - Urinary tract infection [Recovered/Resolved]
  - Acute kidney injury [Recovered/Resolved]
  - Pneumonia [Recovered/Resolved]

NARRATIVE: CASE EVENT DATE: 20160114
